FAERS Safety Report 5132924-4 (Version None)
Quarter: 2006Q4

REPORT INFORMATION
  Report Type: 
  Country: None (occurrence: None)
  Receive Date: 20061023
  Receipt Date: 20061009
  Transmission Date: 20070319
  Serious: Yes (Hospitalization, Other)
  Sender: FDA-Public Use
  Company Number: US-AVENTIS-200618453US

PATIENT
  Age: 30 Year
  Sex: Female

DRUGS (3)
  1. CLOMIFENE [Suspect]
     Indication: INFERTILITY
  2. HUMAN CHORIONIC GONADOTROPIN [Concomitant]
  3. LETROZOLE [Concomitant]
     Indication: INFERTILITY
     Dosage: DOSE: ^LOW DOSE^

REACTIONS (17)
  - ALANINE AMINOTRANSFERASE INCREASED [None]
  - ASPARTATE AMINOTRANSFERASE INCREASED [None]
  - BLOOD BILIRUBIN INCREASED [None]
  - BLOOD CHLORIDE DECREASED [None]
  - BLOOD OSMOLARITY DECREASED [None]
  - BLOOD SODIUM DECREASED [None]
  - DIZZINESS [None]
  - MICTURITION FREQUENCY DECREASED [None]
  - MUSCULAR WEAKNESS [None]
  - NAUSEA [None]
  - PORPHYRIA ACUTE [None]
  - PORPHYRIA SCREEN [None]
  - PORPHYRINS URINE INCREASED [None]
  - URINE CHLORIDE DECREASED [None]
  - URINE DELTA AMINOLEVULINATE [None]
  - URINE OSMOLARITY DECREASED [None]
  - URINE PORPHOBILINOGEN INCREASED [None]
